FAERS Safety Report 7536830-7 (Version None)
Quarter: 2011Q2

REPORT INFORMATION
  Report Type: 
  Country: None (occurrence: None)
  Receive Date: 20110608
  Receipt Date: 20110608
  Transmission Date: 20111010
  Serious: Yes (Life-Threatening)
  Sender: FDA-Public Use
  Company Number: None

PATIENT
  Age: 71 Year
  Sex: Male
  Weight: 111.1313 kg

DRUGS (1)
  1. DAYPRO [Suspect]
     Indication: ARTHRALGIA
     Dosage: 600MG 2 TABLETS DAILY PO
     Route: 048
     Dates: start: 20100617, end: 20100618

REACTIONS (4)
  - ASTHENIA [None]
  - TREMOR [None]
  - DIZZINESS [None]
  - URTICARIA [None]
